FAERS Safety Report 4846602-X (Version None)
Quarter: 2005Q4

REPORT INFORMATION
  Report Type: 
  Country: None (occurrence: None)
  Receive Date: 20051202
  Receipt Date: 20051116
  Transmission Date: 20060501
  Serious: Yes (Hospitalization)
  Sender: FDA-Public Use
  Company Number: DSA_27469_2005

PATIENT
  Age: 73 Year
  Sex: Female

DRUGS (8)
  1. DILTIAZEM HYDROCHLORIDE [Suspect]
     Dosage: 300 MG Q DAY PO
     Route: 048
     Dates: start: 20050601
  2. CORDARONE [Suspect]
     Indication: ARRHYTHMIA
     Dosage: 200 MG Q DAY PO
     Route: 048
  3. CORDARONE [Suspect]
     Indication: ATRIAL FIBRILLATION
     Dosage: 200 MG Q DAY PO
     Route: 048
  4. MEDIATOR [Suspect]
     Indication: DIABETES MELLITUS INSULIN-DEPENDENT
     Dosage: DF PO
     Route: 048
     Dates: start: 20050601, end: 20050622
  5. PREVISCAN [Suspect]
     Dosage: 10 MG Q DAY PO
     Route: 048
  6. PREVISCAN [Suspect]
     Dosage: 15 MG Q DAY PO
     Route: 048
  7. ALDALIX [Suspect]
     Dosage: 70 MG  Q DAY PO
     Route: 048
     Dates: start: 20050601, end: 20050622
  8. NOVOMIX [Suspect]
     Indication: DIABETES MELLITUS INSULIN-DEPENDENT
     Dosage: 38 U Q DAY SC
     Route: 058

REACTIONS (9)
  - ANOREXIA [None]
  - ASTHENIA [None]
  - DEHYDRATION [None]
  - HYPERKALAEMIA [None]
  - HYPOCAPNIA [None]
  - HYPONATRAEMIA [None]
  - HYPOXIA [None]
  - NAUSEA [None]
  - VOLUME BLOOD DECREASED [None]
